FAERS Safety Report 10205196 (Version 1)
Quarter: 2014Q2

REPORT INFORMATION
  Report Type: Spontaneous
  Country: US (occurrence: US)
  Receive Date: 20140529
  Receipt Date: 20140529
  Transmission Date: 20141212
  Serious: Yes (Hospitalization, Other)
  Sender: FDA-Public Use
  Company Number: US-PFIZER INC-2014144002

PATIENT
  Sex: Female

DRUGS (3)
  1. CADUET [Suspect]
     Dosage: UNK
  2. PROTONIX [Suspect]
     Dosage: UNK
  3. DETROL [Suspect]
     Dosage: UNK

REACTIONS (4)
  - Asthma [Unknown]
  - Bronchitis chronic [Unknown]
  - Dyspnoea [Unknown]
  - Emphysema [Unknown]
